FAERS Safety Report 11628851 (Version 2)
Quarter: 2015Q4

REPORT INFORMATION
  Report Type: Spontaneous
  Country: FR (occurrence: FR)
  Receive Date: 20151014
  Receipt Date: 20151229
  Transmission Date: 20160304
  Serious: Yes (Hospitalization)
  Sender: FDA-Public Use
  Company Number: FR-ABBVIE-15K-056-1477412-00

PATIENT
  Age: 48 Year
  Sex: Male

DRUGS (2)
  1. HUMIRA [Suspect]
     Active Substance: ADALIMUMAB
     Indication: CROHN^S DISEASE
     Route: 058
     Dates: start: 2010, end: 20150916
  2. FIVASA [Concomitant]
     Active Substance: MESALAMINE
     Indication: PRODUCT USED FOR UNKNOWN INDICATION
     Dates: start: 2010

REACTIONS (17)
  - Myalgia [Unknown]
  - Cytomegalovirus infection [Unknown]
  - Purpura [Recovered/Resolved]
  - Arthralgia [Unknown]
  - Henoch-Schonlein purpura [Unknown]
  - Asthenia [Unknown]
  - Complement factor C4 increased [Unknown]
  - Antinuclear antibody positive [Unknown]
  - Purpura [Not Recovered/Not Resolved]
  - Weight decreased [Unknown]
  - Hypogammaglobulinaemia [Unknown]
  - Blood immunoglobulin M decreased [Unknown]
  - Hypersensitivity vasculitis [Not Recovered/Not Resolved]
  - Vitamin D deficiency [Unknown]
  - Biopsy skin abnormal [Unknown]
  - Pain in extremity [Unknown]
  - Epstein-Barr virus infection [Unknown]

NARRATIVE: CASE EVENT DATE: 201507
